FAERS Safety Report 12375552 (Version 1)
Quarter: 2016Q2

REPORT INFORMATION
  Report Type: Spontaneous
  Country: US (occurrence: None)
  Receive Date: 20160516
  Receipt Date: 20160516
  Transmission Date: 20160815
  Serious: Yes (Life-Threatening, Hospitalization, Disabling)
  Sender: FDA-Public Use
  Company Number: None

PATIENT
  Age: 52 Year
  Sex: Female
  Weight: 72.58 kg

DRUGS (8)
  1. HEPARIN [Concomitant]
     Active Substance: HEPARIN SODIUM
  2. TAMOXIFEN [Concomitant]
     Active Substance: TAMOXIFEN
  3. ODANSETRON BIOMEDICAL PHARMACO [Suspect]
     Active Substance: ONDANSETRON
     Indication: DRUG ABUSE
     Dates: start: 20110406, end: 20160510
  4. LORAZEPHAM [Concomitant]
  5. WARFARIN [Concomitant]
     Active Substance: WARFARIN
  6. HALDOPERINOL [Concomitant]
  7. TETRECYCLINE [Concomitant]
  8. BENADRIL [Concomitant]

REACTIONS (7)
  - Legal problem [None]
  - Intracardiac thrombus [None]
  - Thrombosis [None]
  - Overdose [None]
  - Blood pressure increased [None]
  - Internal haemorrhage [None]
  - Unevaluable event [None]

NARRATIVE: CASE EVENT DATE: 20160425
